FAERS Safety Report 10189423 (Version 2)
Quarter: 2014Q2

REPORT INFORMATION
  Report Type: Spontaneous
  Country: FR (occurrence: FR)
  Receive Date: 20140522
  Receipt Date: 20140527
  Transmission Date: 20141212
  Serious: Yes (Death)
  Sender: FDA-Public Use
  Company Number: FR-ROCHE-1402258

PATIENT
  Age: 57 Year
  Sex: Female

DRUGS (17)
  1. ROVALCYTE [Suspect]
     Indication: PRODUCT USED FOR UNKNOWN INDICATION
     Route: 048
     Dates: start: 20140414, end: 20140427
  2. BACTRIM [Interacting]
     Indication: PRODUCT USED FOR UNKNOWN INDICATION
     Route: 048
     Dates: start: 20140404, end: 20140425
  3. NATULAN [Interacting]
     Indication: PRODUCT USED FOR UNKNOWN INDICATION
     Route: 048
     Dates: start: 20140426, end: 20140427
  4. INEXIUM [Interacting]
     Indication: PRODUCT USED FOR UNKNOWN INDICATION
     Route: 048
     Dates: start: 20140414
  5. METHOTREXATE [Suspect]
     Indication: PRODUCT USED FOR UNKNOWN INDICATION
     Route: 041
     Dates: start: 20140323, end: 20140323
  6. METHOTREXATE [Suspect]
     Route: 041
     Dates: start: 20140425, end: 20140425
  7. VINCRISTINE [Interacting]
     Indication: PRODUCT USED FOR UNKNOWN INDICATION
     Route: 041
     Dates: start: 20140425, end: 20140425
  8. EUPANTOL [Concomitant]
  9. CYMEVAN [Concomitant]
     Route: 065
     Dates: start: 20140328, end: 20140330
  10. ZARZIO [Concomitant]
     Route: 065
     Dates: start: 20140323, end: 20140403
  11. LOVENOX [Concomitant]
  12. KEPPRA [Concomitant]
  13. ARANESP [Concomitant]
  14. CALCIUM FOLINATE [Concomitant]
     Route: 065
     Dates: start: 20140427
  15. CALCIUM FOLINATE [Concomitant]
     Route: 065
     Dates: start: 20140428
  16. FLUCONAZOLE [Concomitant]
  17. LASILIX [Concomitant]

REACTIONS (5)
  - Chemotherapeutic drug level increased [Fatal]
  - Pancytopenia [Fatal]
  - Septic shock [Fatal]
  - Hepatitis toxic [Fatal]
  - Drug interaction [Fatal]
